FAERS Safety Report 25928992 (Version 1)
Quarter: 2025Q4

REPORT INFORMATION
  Report Type: Spontaneous
  Country: US (occurrence: US)
  Receive Date: 20251016
  Receipt Date: 20251016
  Transmission Date: 20260117
  Serious: Yes (Other)
  Sender: COOPERSURGICAL
  Company Number: US-COOPERSURGICAL, INC.-2025CPS007266

PATIENT
  Age: 37 Year
  Sex: Female
  Weight: 72.562 kg

DRUGS (1)
  1. PARAGARD T 380A [Suspect]
     Active Substance: COPPER
     Dosage: UNK
     Route: 015
     Dates: start: 20100601, end: 20181106

REACTIONS (16)
  - Laparoscopy [Recovered/Resolved]
  - Unwanted pregnancy [Recovered/Resolved]
  - Device breakage [Recovered/Resolved]
  - Foreign body in reproductive tract [Recovered/Resolved]
  - Complication of device removal [Recovered/Resolved]
  - Embedded device [Recovered/Resolved]
  - Uterine perforation [Recovered/Resolved]
  - Device dislocation [Recovered/Resolved]
  - Cystitis [Unknown]
  - Procedural haemorrhage [Recovered/Resolved]
  - Emotional distress [Unknown]
  - Adhesion [Recovered/Resolved]
  - Heavy menstrual bleeding [Unknown]
  - Pain [Unknown]
  - Abdominal pain [Unknown]
  - Device dislocation [Unknown]

NARRATIVE: CASE EVENT DATE: 20180719
